FAERS Safety Report 7047726-1 (Version None)
Quarter: 2010Q4

REPORT INFORMATION
  Report Type: 
  Country: None (occurrence: None)
  Receive Date: 20101015
  Receipt Date: 20101005
  Transmission Date: 20110411
  Serious: Yes (Death)
  Sender: FDA-Public Use
  Company Number: AT-ACTELION-A-CH2010-40205

PATIENT
  Age: 87 Year
  Sex: Male

DRUGS (1)
  1. TRACLEER [Suspect]
     Indication: PULMONARY ARTERIAL HYPERTENSION
     Dosage: UNK , UNK
     Route: 048

REACTIONS (2)
  - DISEASE PROGRESSION [None]
  - PULMONARY ARTERIAL HYPERTENSION [None]
